FAERS Safety Report 4609345-3 (Version None)
Quarter: 2005Q1

REPORT INFORMATION
  Report Type: 
  Country: None (occurrence: None)
  Receive Date: 20050314
  Receipt Date: 20050301
  Transmission Date: 20050727
  Serious: Yes (Hospitalization)
  Sender: FDA-Public Use
  Company Number: 2004240349FR

PATIENT
  Age: 80 Year
  Sex: Female

DRUGS (8)
  1. ATORVASTATIN (ATORVASTATIN CALCIUM) (ATORVASTATIN) [Suspect]
     Indication: ILL-DEFINED DISORDER
     Dosage: AS NECESSARY, ORAL
     Route: 048
     Dates: end: 20040909
  2. PANTOPRAZOLE SODIUM [Suspect]
     Indication: ILL-DEFINED DISORDER
     Dosage: 1 TABLET (1 IN 1 D), ORAL
     Route: 048
     Dates: end: 20040909
  3. ZOPICLONE (ZOPICLONE) (ZOPICLONE) [Suspect]
     Indication: ILL-DEFINED DISORDER
     Dosage: 1 DOSE DAILY
     Dates: end: 20040909
  4. CLOMIPRAMINE HCL [Suspect]
     Indication: ILL-DEFINED DISORDER
     Dosage: 60 MG (1 IN 1 D), ORAL
     Route: 048
     Dates: end: 20040909
  5. ACETYLSALICYLIC ACID SRT [Suspect]
     Indication: ILL-DEFINED DISORDER
     Dosage: 1 DOSE FORMULATION
     Dates: end: 20040909
  6. DIOSMIN (DIOSMIN) [Suspect]
     Indication: ILL-DEFINED DISORDER
     Dosage: 600 MG, (1 IN 1 D), ORAL
     Route: 048
     Dates: end: 20040909
  7. PROPAFENONE HCL [Suspect]
     Indication: ILL-DEFINED DISORDER
     Dosage: 600 MG (1 IN 1 D), ORAL
     Route: 048
     Dates: end: 20040909
  8. BETAHISTINE HYDROCHLORIDE (BETAHISTINE HYDROCHLORIDE) [Suspect]
     Indication: ILL-DEFINED DISORDER
     Dosage: (AS NECESSARY), ORAL
     Route: 048
     Dates: end: 20040909

REACTIONS (3)
  - CONFUSIONAL STATE [None]
  - DRUG INTERACTION [None]
  - HYPONATRAEMIA [None]
